FAERS Safety Report 15145025 (Version 1)
Quarter: 2018Q3

REPORT INFORMATION
  Report Type: Spontaneous
  Country: GR (occurrence: GR)
  Receive Date: 20180713
  Receipt Date: 20180713
  Transmission Date: 20181010
  Serious: Yes (Life-Threatening, Hospitalization, Other)
  Sender: FDA-Public Use
  Company Number: PHHY2018GR040125

PATIENT
  Age: 22 Year
  Sex: Male

DRUGS (1)
  1. OLANZAPINE. [Suspect]
     Active Substance: OLANZAPINE
     Indication: SCHIZOPHRENIA
     Route: 065

REACTIONS (5)
  - Pancreatitis necrotising [Recovering/Resolving]
  - Hyperglycaemia [Unknown]
  - Metabolic acidosis [Unknown]
  - Hypertriglyceridaemia [Unknown]
  - Acute respiratory failure [Unknown]
